FAERS Safety Report 12154775 (Version 3)
Quarter: 2016Q2

REPORT INFORMATION
  Report Type: Spontaneous
  Country: CA (occurrence: CA)
  Receive Date: 20160307
  Receipt Date: 20160415
  Transmission Date: 20160815
  Serious: Yes (Death, Hospitalization, Other)
  Sender: FDA-Public Use
  Company Number: CA-PFIZER INC-2016121679

PATIENT
  Age: 58 Year
  Sex: Female
  Weight: 50.9 kg

DRUGS (11)
  1. METHYLPHENIDATE. [Concomitant]
     Active Substance: METHYLPHENIDATE
     Indication: FATIGUE
     Dosage: 10 MG, UNK
  2. MORPHINE [Concomitant]
     Active Substance: MORPHINE
     Indication: COUGH
  3. MORPHINE [Concomitant]
     Active Substance: MORPHINE
     Indication: PAIN
     Dosage: 2.5 TO 5 MG, AS NEEDED
  4. SENOKOT /00142205/ [Concomitant]
     Indication: CONSTIPATION
     Dosage: 1-2 TABLETS, UNK
  5. SUNITINIB MALATE. [Suspect]
     Active Substance: SUNITINIB MALATE
     Dosage: 37.5 MG, DAILY, CYCLIC (4 WEEKS ON 2 WEEKS OFF)
     Route: 048
     Dates: start: 20151130
  6. SUNITINIB MALATE. [Suspect]
     Active Substance: SUNITINIB MALATE
     Indication: ENDOMETRIAL CANCER
     Dosage: 50 MG DAILY, CYCLIC (4 WEEKS ON 2 WEEKS OFF)
     Route: 048
     Dates: start: 20151007
  7. M-ESLON [Concomitant]
     Active Substance: MORPHINE SULFATE
     Indication: COUGH
  8. RESTORALAX [Concomitant]
     Active Substance: POLYETHYLENE GLYCOL 3350
     Indication: CONSTIPATION
     Dosage: 17 G, DAILY
  9. COLACE [Concomitant]
     Active Substance: DOCUSATE SODIUM
     Indication: CONSTIPATION
     Dosage: 1-2 TABLETS, UNK
  10. SUNITINIB MALATE. [Suspect]
     Active Substance: SUNITINIB MALATE
     Dosage: 37.5 MG, CYCLIC (CYCLE 4)
     Route: 048
     Dates: start: 20160302, end: 20160304
  11. M-ESLON [Concomitant]
     Active Substance: MORPHINE SULFATE
     Indication: PAIN
     Dosage: 15 MG, UNK

REACTIONS (5)
  - Pneumothorax [Not Recovered/Not Resolved]
  - Pneumothorax [Recovered/Resolved]
  - Cerebellar haemorrhage [Fatal]
  - Product use issue [Unknown]
  - Neutrophil count decreased [Recovered/Resolved]

NARRATIVE: CASE EVENT DATE: 20160223
